FAERS Safety Report 7639297-3 (Version None)
Quarter: 2011Q3

REPORT INFORMATION
  Report Type: 
  Country: None (occurrence: None)
  Receive Date: 20110727
  Receipt Date: 20110722
  Transmission Date: 20111222
  Serious: Yes (Hospitalization)
  Sender: FDA-Public Use
  Company Number: PHHO2011US12684

PATIENT
  Age: 84 Year
  Sex: Female
  Weight: 82 kg

DRUGS (2)
  1. ZOLEDRONIC ACID [Suspect]
  2. SUNITINIB MALATE [Suspect]
     Indication: NON-SMALL CELL LUNG CANCER

REACTIONS (2)
  - RENAL FAILURE ACUTE [None]
  - GLOMERULONEPHRITIS [None]
